FAERS Safety Report 6199935-1 (Version None)
Quarter: 2009Q2

REPORT INFORMATION
  Report Type: 
  Country: None (occurrence: None)
  Receive Date: 20090522
  Receipt Date: 20090514
  Transmission Date: 20091009
  Serious: Yes (Hospitalization)
  Sender: FDA-Public Use
  Company Number: US-BIOGENIDEC-2009BI007060

PATIENT
  Age: 39 Year
  Sex: Female
  Weight: 116 kg

DRUGS (1)
  1. TYSABRI [Suspect]
     Indication: MULTIPLE SCLEROSIS
     Route: 042
     Dates: start: 20090303, end: 20090303

REACTIONS (7)
  - ABDOMINAL PAIN UPPER [None]
  - ANAPHYLACTIC SHOCK [None]
  - DYSPNOEA [None]
  - EXTRASYSTOLES [None]
  - FLUSHING [None]
  - RASH [None]
  - URTICARIA [None]
